FAERS Safety Report 4392700-7 (Version None)
Quarter: 2004Q3

REPORT INFORMATION
  Report Type: 
  Country: None (occurrence: None)
  Receive Date: 20040702
  Receipt Date: 20040323
  Transmission Date: 20050211
  Serious: Yes (Other)
  Sender: FDA-Public Use
  Company Number: 2004UW05583

PATIENT
  Age: 64 Year
  Sex: Female
  Weight: 86.1834 kg

DRUGS (6)
  1. CRESTOR [Suspect]
     Indication: HYPERCHOLESTEROLAEMIA
     Dosage: 10 MG QD PO
     Route: 048
     Dates: start: 20040316, end: 20040321
  2. PREDNISONE [Concomitant]
  3. NEXIUM [Concomitant]
  4. ZOLOFT [Concomitant]
  5. ZYRTEC [Concomitant]
  6. FOSAMAX [Concomitant]

REACTIONS (5)
  - ABASIA [None]
  - ABDOMINAL PAIN [None]
  - APPETITE DISORDER [None]
  - ASTHENIA [None]
  - PAIN [None]
